FAERS Safety Report 6518504-4 (Version None)
Quarter: 2009Q4

REPORT INFORMATION
  Report Type: 
  Country: None (occurrence: None)
  Receive Date: 20091226
  Receipt Date: 20091216
  Transmission Date: 20100525
  Serious: Yes (Other)
  Sender: FDA-Public Use
  Company Number: US-JNJFOC-20091205912

PATIENT
  Sex: Female

DRUGS (1)
  1. DURAGESIC-100 [Suspect]
     Indication: DRUG USE FOR UNKNOWN INDICATION
     Dosage: NDC# 50458-093-05
     Route: 062
     Dates: start: 20091203

REACTIONS (4)
  - ABDOMINAL DISTENSION [None]
  - HAEMATOCHEZIA [None]
  - NAUSEA [None]
  - PRODUCT QUALITY ISSUE [None]
